FAERS Safety Report 8164252-7 (Version None)
Quarter: 2012Q1

REPORT INFORMATION
  Report Type: 
  Country: None (occurrence: None)
  Receive Date: 20120224
  Receipt Date: 20111227
  Transmission Date: 20120608
  Serious: No
  Sender: FDA-Public Use
  Company Number: US-ASTRAZENECA-2011SE62364

PATIENT
  Age: 79 Year
  Sex: Female
  Weight: 76.7 kg

DRUGS (5)
  1. VIMOVO [Suspect]
     Indication: PAIN
     Dosage: 375.2 MG/20 MG, TWO TIMES A DAY
     Route: 048
     Dates: start: 20111020
  2. CALTRATE+D [Concomitant]
  3. LEVOTHYROXINE SODIUM [Concomitant]
  4. VIMOVO [Suspect]
     Indication: ARTHRALGIA
     Dosage: 375.2 MG/20 MG, TWO TIMES A DAY
     Route: 048
     Dates: start: 20111020
  5. PRAVASTATIN SODIUM [Concomitant]

REACTIONS (2)
  - DRUG INEFFECTIVE [None]
  - PAIN [None]
